FAERS Safety Report 8022188-6 (Version None)
Quarter: 2012Q1

REPORT INFORMATION
  Report Type: 
  Country: None (occurrence: None)
  Receive Date: 20120104
  Receipt Date: 20111230
  Transmission Date: 20120608
  Serious: Yes (Hospitalization)
  Sender: FDA-Public Use
  Company Number: US-SANOFI-AVENTIS-2011SA082211

PATIENT
  Age: 62 Year
  Sex: Female
  Weight: 56.6 kg

DRUGS (6)
  1. OMEPRAZOLE [Suspect]
  2. ZANTAC [Suspect]
     Route: 048
  3. FERROUS SULFATE TAB [Concomitant]
  4. PLAVIX [Suspect]
     Route: 048
     Dates: start: 20080601
  5. PROTONIX [Concomitant]
  6. DICYCLOMINE [Concomitant]
     Indication: DIVERTICULITIS

REACTIONS (9)
  - FATIGUE [None]
  - ANXIETY [None]
  - ABDOMINAL PAIN [None]
  - CONSTIPATION [None]
  - FEELING ABNORMAL [None]
  - DYSPEPSIA [None]
  - DIARRHOEA [None]
  - BLOOD IRON DECREASED [None]
  - SURGERY [None]
